FAERS Safety Report 6371997-8 (Version None)
Quarter: 2009Q3

REPORT INFORMATION
  Report Type: 
  Country: None (occurrence: None)
  Receive Date: 20090917
  Receipt Date: 20090904
  Transmission Date: 20100115
  Serious: Yes (Hospitalization)
  Sender: FDA-Public Use
  Company Number: ADR16522009

PATIENT
  Age: 76 Year
  Sex: Female

DRUGS (5)
  1. CITALOPRAM [Suspect]
     Indication: DEPRESSION
     Dosage: 20 MG/DAY, ORAL
     Route: 048
     Dates: start: 20060410, end: 20060420
  2. BENDROFLUMETHIAZIDE [Concomitant]
  3. LOSARTAN [Concomitant]
  4. PARACETAMOL [Concomitant]
  5. IBULEVE (IBUPROFEN [Concomitant]

REACTIONS (5)
  - BLOOD POTASSIUM DECREASED [None]
  - BLOOD SODIUM DECREASED [None]
  - CONFUSIONAL STATE [None]
  - ELECTROLYTE IMBALANCE [None]
  - URINARY TRACT INFECTION [None]
